FAERS Safety Report 5966566-5 (Version None)
Quarter: 2008Q4

REPORT INFORMATION
  Report Type: 
  Country: None (occurrence: None)
  Receive Date: 20081119
  Receipt Date: 20080721
  Transmission Date: 20090506
  Serious: No
  Sender: FDA-Public Use
  Company Number: WAES 0807USA04038

PATIENT
  Age: 80 Year
  Sex: Female

DRUGS (12)
  1. JANUVIA [Suspect]
     Indication: DIABETES MELLITUS
     Dosage: DAILY/PO ; 100 MG/DAILY/PO
     Route: 048
     Dates: start: 20080327, end: 20080507
  2. JANUVIA [Suspect]
     Indication: DIABETES MELLITUS
     Dosage: DAILY/PO ; 100 MG/DAILY/PO
     Route: 048
     Dates: start: 20080508, end: 20080718
  3. AMARYL [Concomitant]
  4. DETROL LA [Concomitant]
  5. LIPITOR [Concomitant]
  6. MOBIC [Concomitant]
  7. PLAVIX [Concomitant]
  8. PREVACID [Concomitant]
  9. SYNTHROID [Concomitant]
  10. AMITRIPTYLINE HCL [Concomitant]
  11. ASPIRIN [Concomitant]
  12. VITAMINS (UNSPECIFIED) [Concomitant]

REACTIONS (4)
  - EATING DISORDER [None]
  - RASH [None]
  - SKIN EXFOLIATION [None]
  - WRONG TECHNIQUE IN DRUG USAGE PROCESS [None]
